FAERS Safety Report 15622549 (Version 1)
Quarter: 2018Q4

REPORT INFORMATION
  Report Type: Report from Study
  Country: RU (occurrence: RU)
  Receive Date: 20181115
  Receipt Date: 20181115
  Transmission Date: 20190205
  Serious: Yes (Hospitalization, Other)
  Sender: FDA-Public Use
  Company Number: RU-ASTRAZENECA-2018SF46420

PATIENT
  Age: 67 Year
  Sex: Male
  Weight: 75 kg

DRUGS (6)
  1. NOLPAZA [Concomitant]
     Active Substance: PANTOPRAZOLE SODIUM
  2. AMPRILAN [Concomitant]
     Active Substance: RAMIPRIL
  3. LIPRIMAR [Concomitant]
     Active Substance: ATORVASTATIN CALCIUM
  4. BRILINTA [Suspect]
     Active Substance: TICAGRELOR
     Indication: MYOCARDIAL INFARCTION
     Dosage: 90 MG BID
     Route: 048
     Dates: start: 20180327
  5. ASPIRIN. [Concomitant]
     Active Substance: ASPIRIN
     Dosage: 300 MG.
     Dates: start: 201804, end: 201805
  6. BISOPROLOL [Concomitant]
     Active Substance: BISOPROLOL

REACTIONS (4)
  - Gastric haemorrhage [Unknown]
  - Gastric ulcer perforation [Recovered/Resolved]
  - Off label use [Unknown]
  - Intentional product use issue [Unknown]

NARRATIVE: CASE EVENT DATE: 20180723
